APPROVED DRUG PRODUCT: ISOSORBIDE DINITRATE
Active Ingredient: ISOSORBIDE DINITRATE
Strength: 40MG
Dosage Form/Route: TABLET, EXTENDED RELEASE;ORAL
Application: A040009 | Product #001
Applicant: SUN PHARMACEUTICAL INDUSTRIES INC
Approved: Dec 30, 1998 | RLD: No | RS: No | Type: DISCN